FAERS Safety Report 4588571-6 (Version None)
Quarter: 2005Q1

REPORT INFORMATION
  Report Type: 
  Country: None (occurrence: None)
  Receive Date: 20050218
  Receipt Date: 20050211
  Transmission Date: 20050727
  Serious: Yes (Hospitalization, Other)
  Sender: FDA-Public Use
  Company Number: 05-02-0223

PATIENT
  Sex: Female

DRUGS (3)
  1. ALBUTEROL SULFATE [Suspect]
     Dosage: INHALATION
     Route: 055
  2. BECLOMETHASONE DIPROPIONATE [Suspect]
     Dosage: INHALATION
     Route: 055
  3. CANDESARTAN CILEXETIL [Suspect]

REACTIONS (5)
  - ANTEPARTUM HAEMORRHAGE [None]
  - CONGENITAL BLADDER ANOMALY [None]
  - DRUG EXPOSURE DURING PREGNANCY [None]
  - FOETAL GROWTH RETARDATION [None]
  - PREMATURE BABY [None]
